FAERS Safety Report 5439520-X (Version None)
Quarter: 2007Q3

REPORT INFORMATION
  Report Type: 
  Country: None (occurrence: None)
  Receive Date: 20070831
  Receipt Date: 20070822
  Transmission Date: 20080115
  Serious: Yes (Other)
  Sender: FDA-Public Use
  Company Number: JP-ROCHE-513510

PATIENT
  Sex: Male

DRUGS (1)
  1. ROCEPHIN [Suspect]
     Indication: URINARY TRACT INFECTION
     Route: 041
     Dates: start: 20070804, end: 20070811

REACTIONS (1)
  - RENAL FAILURE [None]
